FAERS Safety Report 7567963-7 (Version None)
Quarter: 2011Q2

REPORT INFORMATION
  Report Type: 
  Country: None (occurrence: None)
  Receive Date: 20110623
  Receipt Date: 20110616
  Transmission Date: 20111010
  Serious: Yes (Life-Threatening)
  Sender: FDA-Public Use
  Company Number: FR-SANOFI-AVENTIS-2011SA038252

PATIENT
  Age: 80 Year
  Sex: Male

DRUGS (6)
  1. SPIRONOLACTONE [Concomitant]
     Route: 065
  2. VERPAMIL HCL [Concomitant]
     Route: 065
  3. TELITHROMYCIN [Suspect]
     Route: 048
     Dates: start: 20110223, end: 20110224
  4. ATORVASTATIN [Concomitant]
     Route: 065
  5. FUROSEMIDE [Concomitant]
     Route: 065
  6. PREVISCAN [Suspect]
     Dosage: 1.25 NOS
     Route: 048
     Dates: end: 20110224

REACTIONS (2)
  - INTERNATIONAL NORMALISED RATIO INCREASED [None]
  - PROTHROMBIN TIME SHORTENED [None]
